FAERS Safety Report 8903160 (Version 5)
Quarter: 2013Q4

REPORT INFORMATION
  Report Type: Spontaneous
  Country: TR (occurrence: TR)
  Receive Date: 20121112
  Receipt Date: 20131017
  Transmission Date: 20140711
  Serious: Yes (Other)
  Sender: FDA-Public Use
  Company Number: TR-AMGEN-TURSP2012063497

PATIENT
  Age: 40 Year
  Sex: Male
  Weight: 74 kg

DRUGS (3)
  1. ENBREL [Suspect]
     Indication: ANKYLOSING SPONDYLITIS
     Dosage: 50 MG, WEEKLY
     Route: 058
     Dates: start: 20120918, end: 20121213
  2. ENBREL [Suspect]
     Dosage: 50 MG, QWK
     Route: 058
     Dates: end: 20131005
  3. ISONIAZID [Concomitant]
     Dosage: UNK, 1X/DAY
     Route: 048
     Dates: start: 20120828

REACTIONS (10)
  - Weight increased [Not Recovered/Not Resolved]
  - Dental caries [Not Recovered/Not Resolved]
  - Gingival bleeding [Recovered/Resolved]
  - Tooth disorder [Unknown]
  - Increased appetite [Not Recovered/Not Resolved]
  - Arthralgia [Not Recovered/Not Resolved]
  - Acne [Recovered/Resolved]
  - Rhinorrhoea [Not Recovered/Not Resolved]
  - Injection site pain [Recovered/Resolved]
  - Influenza [Recovered/Resolved]
